FAERS Safety Report 5216129-4 (Version None)
Quarter: 2006Q4

REPORT INFORMATION
  Report Type: 
  Country: None (occurrence: None)
  Receive Date: 20061122
  Receipt Date: 20060714
  Transmission Date: 20070319
  Serious: Yes (Other)
  Sender: FDA-Public Use
  Company Number: 2006087442

PATIENT
  Age: 84 Year
  Sex: Female
  Weight: 72.5755 kg

DRUGS (3)
  1. LIPITOR [Suspect]
     Indication: HYPERTENSION
  2. PLAVIX [Concomitant]
  3. COZAAR [Concomitant]

REACTIONS (1)
  - AMNESIA [None]
